FAERS Safety Report 10716591 (Version 1)
Quarter: 2015Q1

REPORT INFORMATION
  Report Type: Spontaneous
  Country: US (occurrence: None)
  Receive Date: 20150115
  Receipt Date: 20150115
  Transmission Date: 20150721
  Serious: Yes (Hospitalization)
  Sender: FDA-Public Use
  Company Number: None

PATIENT
  Age: 50 Year
  Sex: Female
  Weight: 61.24 kg

DRUGS (1)
  1. BONIVA [Suspect]
     Active Substance: IBANDRONATE SODIUM
     Dosage: 1 PILL, MONTLY, ORAL
     Route: 048
     Dates: start: 20130325

REACTIONS (19)
  - Limb injury [None]
  - Myalgia [None]
  - Back pain [None]
  - Headache [None]
  - Diarrhoea [None]
  - Vertigo [None]
  - Fall [None]
  - Dyspnoea [None]
  - Hypersensitivity [None]
  - Insomnia [None]
  - Tremor [None]
  - Arthralgia [None]
  - Neck injury [None]
  - Head injury [None]
  - Chest pain [None]
  - Blood potassium decreased [None]
  - Bone pain [None]
  - Loss of consciousness [None]
  - Joint injury [None]

NARRATIVE: CASE EVENT DATE: 20130325
